FAERS Safety Report 25283020 (Version 3)
Quarter: 2025Q3

REPORT INFORMATION
  Report Type: Spontaneous
  Country: US (occurrence: US)
  Receive Date: 20250508
  Receipt Date: 20250710
  Transmission Date: 20251021
  Serious: No
  Sender: PFIZER
  Company Number: US-PFIZER INC-202500092584

PATIENT
  Age: 13 Year
  Sex: Female
  Weight: 38.56 kg

DRUGS (3)
  1. GENOTROPIN [Suspect]
     Active Substance: SOMATROPIN
     Indication: Growth hormone deficiency
     Dosage: ALTERNATING DOSES 1.4MG AND 1.6MG FOR AN AVERAGE OF 1.5MG PER DAY
     Route: 030
     Dates: start: 202503
  2. GENOTROPIN [Suspect]
     Active Substance: SOMATROPIN
     Dosage: ALTERNATING DOSES 1.4MG AND 1.6MG FOR AN AVERAGE OF 1.5MG PER DAY
     Route: 030
     Dates: start: 202503
  3. LARIN 1/20 [Concomitant]
     Active Substance: ETHINYL ESTRADIOL\NORETHINDRONE ACETATE
     Indication: Contraception
     Dosage: 1/20TH OF A MG, TABLET, EVERY DAY BY MOUTH
     Route: 048

REACTIONS (3)
  - Drug dose omission by device [Unknown]
  - Device physical property issue [Unknown]
  - Off label use [Unknown]
